FAERS Safety Report 9869380 (Version 2)
Quarter: 2014Q1

REPORT INFORMATION
  Report Type: Spontaneous
  Country: US (occurrence: US)
  Receive Date: 20140205
  Receipt Date: 20140205
  Transmission Date: 20141002
  Serious: Yes (Hospitalization)
  Sender: FDA-Public Use
  Company Number: US-ELI_LILLY_AND_COMPANY-US201108008335

PATIENT
  Age: 61 Year
  Sex: Female

DRUGS (15)
  1. CYMBALTA [Suspect]
     Indication: FIBROMYALGIA
     Dosage: 60 MG, QD
     Route: 065
     Dates: start: 20110817
  2. CYMBALTA [Suspect]
     Dosage: 30 MG, QD
     Route: 065
     Dates: start: 2013, end: 20131216
  3. SYNTHROID [Concomitant]
     Dosage: UNK, UNKNOWN
  4. PRILOSEC [Concomitant]
     Dosage: UNK, UNKNOWN
  5. ZYRTEC [Concomitant]
     Dosage: UNK, UNKNOWN
  6. PEPCID [Concomitant]
     Dosage: UNK, UNKNOWN
  7. CORTICOSTEROIDS [Concomitant]
     Dosage: UNK UNK, UNKNOWN
     Dates: start: 201105
  8. METHOTREXATE [Concomitant]
     Dosage: UNK, WEEKLY (1/W)
  9. FOLIC ACID [Concomitant]
     Dosage: UNK, UNKNOWN
  10. LEUCOVORIN                         /00566701/ [Concomitant]
     Dosage: UNK, UNKNOWN
  11. PRED FORTE [Concomitant]
     Dosage: UNK, UNKNOWN
  12. RESTASIS [Concomitant]
     Dosage: UNK, UNKNOWN
  13. VITAMIN D                          /00107901/ [Concomitant]
     Dosage: UNK, UNKNOWN
  14. VITAMIN B12                        /00091801/ [Concomitant]
     Dosage: UNK, UNKNOWN
  15. VENTOLIN                           /00139501/ [Concomitant]
     Dosage: UNK, UNKNOWN

REACTIONS (4)
  - Dyspnoea [Not Recovered/Not Resolved]
  - Cardiac disorder [Unknown]
  - Blood glucose abnormal [Unknown]
  - Menstrual disorder [Unknown]
